FAERS Safety Report 12076162 (Version 2)
Quarter: 2016Q1

REPORT INFORMATION
  Report Type: Spontaneous
  Country: US (occurrence: US)
  Receive Date: 20160215
  Receipt Date: 20160309
  Transmission Date: 20160526
  Serious: Yes (Other)
  Sender: FDA-Public Use
  Company Number: US-BEH-2016058569

PATIENT
  Age: 52 Year
  Sex: Female
  Weight: 62 kg

DRUGS (25)
  1. HEPARIN [Concomitant]
     Active Substance: HEPARIN SODIUM
  2. LMX [Concomitant]
     Active Substance: LIDOCAINE
  3. ALENDRONATE [Concomitant]
     Active Substance: ALENDRONATE SODIUM
  4. FLUOCINONIDE. [Concomitant]
     Active Substance: FLUOCINONIDE
  5. SODIUM CHLORIDE. [Concomitant]
     Active Substance: SODIUM CHLORIDE
  6. PREDNISONE. [Concomitant]
     Active Substance: PREDNISONE
  7. TIZANIDINE. [Concomitant]
     Active Substance: TIZANIDINE
  8. ZEMAIRA [Suspect]
     Active Substance: .ALPHA.1-PROTEINASE INHIBITOR HUMAN
     Indication: ALPHA-1 ANTI-TRYPSIN DEFICIENCY
     Route: 042
  9. DILTIAZEM [Concomitant]
     Active Substance: DILTIAZEM
  10. EXCEDRIN MIGRAINE [Concomitant]
     Active Substance: ACETAMINOPHEN\ASPIRIN\CAFFEINE
  11. SINGULAIR [Concomitant]
     Active Substance: MONTELUKAST SODIUM
  12. DIPHENHYDRAMINE. [Concomitant]
     Active Substance: DIPHENHYDRAMINE
  13. OPANA ER [Concomitant]
     Active Substance: OXYMORPHONE HYDROCHLORIDE
  14. NYSTATIN. [Concomitant]
     Active Substance: NYSTATIN
  15. OXYGEN. [Concomitant]
     Active Substance: OXYGEN
  16. LOVASTATIN. [Concomitant]
     Active Substance: LOVASTATIN
  17. SYMBICORT [Concomitant]
     Active Substance: BUDESONIDE\FORMOTEROL FUMARATE DIHYDRATE
  18. VENTOLIN [Concomitant]
     Active Substance: ALBUTEROL SULFATE
  19. OMEPRAZOLE. [Concomitant]
     Active Substance: OMEPRAZOLE
  20. EPIPEN [Concomitant]
     Active Substance: EPINEPHRINE
  21. ESTRADIOL. [Concomitant]
     Active Substance: ESTRADIOL
  22. NORMAL SALINE [Concomitant]
     Active Substance: SODIUM CHLORIDE
  23. FLUOXETINE [Concomitant]
     Active Substance: FLUOXETINE HYDROCHLORIDE
  24. IPRATROPIUM [Concomitant]
     Active Substance: IPRATROPIUM
  25. CALCIUM [Concomitant]
     Active Substance: CALCIUM

REACTIONS (1)
  - Chronic obstructive pulmonary disease [Recovered/Resolved]

NARRATIVE: CASE EVENT DATE: 20160125
